FAERS Safety Report 14491836 (Version 1)
Quarter: 2018Q1

REPORT INFORMATION
  Report Type: Report from Study
  Country: US (occurrence: US)
  Receive Date: 20180206
  Receipt Date: 20180206
  Transmission Date: 20180509
  Serious: Yes (Hospitalization)
  Sender: FDA-Public Use
  Company Number: US-EMD SERONO-8156769

PATIENT
  Sex: Female

DRUGS (1)
  1. REBIF [Suspect]
     Active Substance: INTERFERON BETA-1A
     Indication: MULTIPLE SCLEROSIS
     Route: 058
     Dates: start: 2003, end: 2003

REACTIONS (3)
  - Depression [Unknown]
  - Drug intolerance [Unknown]
  - Suicidal ideation [Recovered/Resolved]

NARRATIVE: CASE EVENT DATE: 2003
